FAERS Safety Report 16193343 (Version 1)
Quarter: 2019Q2

REPORT INFORMATION
  Report Type: Spontaneous
  Country: US (occurrence: US)
  Receive Date: 20190413
  Receipt Date: 20190413
  Transmission Date: 20190711
  Serious: No
  Sender: FDA-Public Use
  Company Number: US-TEVA-2019-US-1027426

PATIENT
  Sex: Male

DRUGS (1)
  1. ENOXAPARIN SODIUM INJECTION [Suspect]
     Active Substance: ENOXAPARIN SODIUM
     Dosage: FORM STRENGTH: 150 MG/1 ML.
     Route: 065

REACTIONS (3)
  - Wrong technique in product usage process [Unknown]
  - Injection site mass [Unknown]
  - Injection site bruising [Unknown]

NARRATIVE: CASE EVENT DATE: 20190313
